FAERS Safety Report 19778245 (Version 8)
Quarter: 2022Q1

REPORT INFORMATION
  Report Type: Report from Study
  Country: US (occurrence: US)
  Receive Date: 20210902
  Receipt Date: 20220209
  Transmission Date: 20220423
  Serious: No
  Sender: FDA-Public Use
  Company Number: US-GLAXOSMITHKLINE-US2021AMR171248

PATIENT
  Age: 70 Year
  Sex: Male

DRUGS (1)
  1. BELANTAMAB MAFODOTIN [Suspect]
     Active Substance: BELANTAMAB MAFODOTIN
     Indication: Plasma cell myeloma
     Dosage: UNK
     Dates: start: 20210623, end: 20211026

REACTIONS (6)
  - Keratopathy [Not Recovered/Not Resolved]
  - Corneal disorder [Unknown]
  - Night blindness [Unknown]
  - Visual acuity reduced [Unknown]
  - Ocular toxicity [Not Recovered/Not Resolved]
  - Dry eye [Unknown]

NARRATIVE: CASE EVENT DATE: 20210701
